FAERS Safety Report 26103534 (Version 1)
Quarter: 2025Q4

REPORT INFORMATION
  Report Type: Spontaneous
  Country: EU (occurrence: EU)
  Receive Date: 20251129
  Receipt Date: 20251129
  Transmission Date: 20260118
  Serious: Yes (Life-Threatening, Hospitalization, Other)
  Sender: ACCORD
  Company Number: EU-Accord-514449

PATIENT
  Age: 80 Year
  Sex: Male
  Weight: 78.0 kg

DRUGS (6)
  1. FLUOROURACIL [Suspect]
     Active Substance: FLUOROURACIL
     Indication: Colorectal cancer metastatic
     Dosage: 800 MG, SINGLE (ONCE)
     Route: 042
     Dates: start: 20250813, end: 20250827
  2. OXALIPLATIN [Suspect]
     Active Substance: OXALIPLATIN
     Indication: Colorectal cancer metastatic
     Dosage: 170 MG, SINGLE (ONCE)
     Route: 042
     Dates: start: 20250813, end: 20250827
  3. TUCATINIB [Suspect]
     Active Substance: TUCATINIB
     Indication: Colorectal cancer metastatic
     Dosage: DAILY
     Route: 048
     Dates: start: 20250813, end: 20250902
  4. TRASTUZUMAB [Concomitant]
     Active Substance: TRASTUZUMAB
     Indication: Colorectal cancer metastatic
     Dosage: 648 MG, SINGLE (ONCE)
     Route: 042
     Dates: start: 20250813, end: 20250813
  5. LEVOLEUCOVORIN CALCIUM [Concomitant]
     Active Substance: LEVOLEUCOVORIN CALCIUM
     Indication: Colorectal cancer metastatic
     Dosage: 400 MG, SINGLE (ONCE)
     Route: 042
     Dates: start: 20250813, end: 20250827
  6. FLUOROURACIL [Suspect]
     Active Substance: FLUOROURACIL
     Indication: Colorectal cancer metastatic
     Dosage: 4800 MG, SINGLE (ONCE)
     Route: 042
     Dates: start: 20250813, end: 20250827

REACTIONS (6)
  - Stomatitis [Recovered/Resolved]
  - Oesophagitis [Recovered/Resolved]
  - Neutropenia [Recovered/Resolved]
  - Anaemia [Recovered/Resolved]
  - Pneumonia pneumococcal [Recovered/Resolved]
  - Thrombocytopenia [Recovered/Resolved]

NARRATIVE: CASE EVENT DATE: 20250101
